FAERS Safety Report 5353249-8 (Version None)
Quarter: 2007Q2

REPORT INFORMATION
  Report Type: 
  Country: None (occurrence: None)
  Receive Date: 20070608
  Receipt Date: 20070523
  Transmission Date: 20071010
  Serious: Yes (Hospitalization)
  Sender: FDA-Public Use
  Company Number: 156738USA

PATIENT
  Age: 91 Year
  Sex: Female

DRUGS (6)
  1. CIPROFLOXACIN HYDROCHLORIDE [Suspect]
     Indication: URINARY TRACT INFECTION
     Dosage: 250 MG EVERY 12 HOURS (250 MG EVERY 12 HOURS (250 MG), ORAL
     Route: 048
     Dates: start: 20070403
  2. FERROUS FUMARATE [Concomitant]
  3. ENALAPRIL MALEATE [Concomitant]
  4. HYDROCHLOROTHIAZIDE [Concomitant]
  5. CLONIDINE [Concomitant]
  6. CALCIUM CARBONATE [Concomitant]

REACTIONS (4)
  - ABDOMINAL ADHESIONS [None]
  - ESCHERICHIA URINARY TRACT INFECTION [None]
  - INTESTINAL OBSTRUCTION [None]
  - RADIATION INJURY [None]
